FAERS Safety Report 18082571 (Version 1)
Quarter: 2020Q3

REPORT INFORMATION
  Report Type: Spontaneous
  Country: PL (occurrence: PL)
  Receive Date: 20200728
  Receipt Date: 20200728
  Transmission Date: 20201103
  Serious: Yes (Hospitalization)
  Sender: FDA-Public Use
  Company Number: PL-CELGENEUS-POL-20200706114

PATIENT
  Age: 41 Year

DRUGS (6)
  1. DEXAMETHASONE. [Concomitant]
     Active Substance: DEXAMETHASONE
     Indication: PLASMA CELL MYELOMA
     Route: 065
     Dates: start: 202002
  2. POMALIDOMIDE [Suspect]
     Active Substance: POMALIDOMIDE
     Route: 048
     Dates: start: 202004
  3. TRIMETHOPRIM. [Concomitant]
     Active Substance: TRIMETHOPRIM
     Indication: PLASMA CELL MYELOMA
     Route: 065
  4. POMALIDOMIDE [Suspect]
     Active Substance: POMALIDOMIDE
     Indication: PLASMA CELL MYELOMA
     Route: 048
     Dates: start: 202002
  5. ZOLEDRONIC ACID. [Concomitant]
     Active Substance: ZOLEDRONIC ACID
     Indication: PLASMA CELL MYELOMA
     Route: 065
  6. ACYCLOVIR. [Concomitant]
     Active Substance: ACYCLOVIR
     Indication: PLASMA CELL MYELOMA
     Route: 065

REACTIONS (3)
  - Plasma cell myeloma [Unknown]
  - Neoplasm [Unknown]
  - Plasmacytoma [Unknown]

NARRATIVE: CASE EVENT DATE: 202004
